FAERS Safety Report 13735464 (Version 1)
Quarter: 2017Q3

REPORT INFORMATION
  Report Type: Spontaneous
  Country: US (occurrence: US)
  Receive Date: 20170709
  Receipt Date: 20170709
  Transmission Date: 20171127
  Serious: Yes (Other)
  Sender: FDA-Public Use
  Company Number: None

PATIENT
  Age: 66 Year
  Sex: Female
  Weight: 56.25 kg

DRUGS (9)
  1. NATURE MADE VITAMIN E [Concomitant]
  2. NATURE MADE BALANCED B COMPLEX [Concomitant]
  3. NATURE MADE ZINC [Concomitant]
  4. ENZYMEDICA DIGEST GOLD WITH ATPRO [Concomitant]
  5. OMEPRAZOLE DR [Suspect]
     Active Substance: OMEPRAZOLE
     Indication: GASTROOESOPHAGEAL REFLUX DISEASE
     Dosage: ?          OTHER STRENGTH:MG;QUANTITY:1 CAPSULE(S);?
     Route: 048
     Dates: start: 20170627, end: 20170707
  6. NATURE MADE TRIPLE FLEX WITH VITAMIN D3 [Concomitant]
  7. GENERIC CLIMARA PATCH [Concomitant]
  8. NATURE MADE SUPER B COMPLEX [Concomitant]
  9. MEGA RED KRILL OIL [Concomitant]

REACTIONS (1)
  - Asthma [None]

NARRATIVE: CASE EVENT DATE: 20170707
